FAERS Safety Report 5752566-7 (Version None)
Quarter: 2008Q2

REPORT INFORMATION
  Report Type: 
  Country: None (occurrence: None)
  Receive Date: 20080529
  Receipt Date: 20080523
  Transmission Date: 20081010
  Serious: Yes (Hospitalization, Other)
  Sender: FDA-Public Use
  Company Number: PHHY2008JP07633

PATIENT

DRUGS (11)
  1. TEGRETOL [Suspect]
     Indication: CEREBRAL INFARCTION
     Dosage: 200 MG, 1 TABLET DAILY
     Route: 048
     Dates: start: 20080314, end: 20080501
  2. CEROCRAL [Concomitant]
     Route: 048
  3. ASPIRIN [Concomitant]
     Route: 048
  4. DIGOXIN [Concomitant]
     Dosage: UNK, UNK
     Route: 048
  5. LEVOFLOXACIN [Concomitant]
     Dosage: UNK
     Dates: start: 20080419, end: 20080421
  6. STEROIDS NOS [Concomitant]
  7. OMEPRAZOLE [Concomitant]
     Dosage: 10 MG
     Route: 048
  8. MAGMITT [Concomitant]
     Route: 048
  9. SOLU-MEDROL [Concomitant]
     Dosage: 1 GM
     Route: 042
  10. RINDERON [Concomitant]
     Dosage: 6 MG/DAY
     Route: 042
     Dates: start: 20080505, end: 20080509
  11. PREDNISOLONE [Suspect]
     Dosage: 40 MG/DAY
     Route: 048

REACTIONS (16)
  - ALANINE AMINOTRANSFERASE INCREASED [None]
  - ASPARTATE AMINOTRANSFERASE INCREASED [None]
  - ASTHENIA [None]
  - BLOOD SODIUM DECREASED [None]
  - C-REACTIVE PROTEIN INCREASED [None]
  - DEPRESSED LEVEL OF CONSCIOUSNESS [None]
  - EOSINOPHIL COUNT INCREASED [None]
  - ERYTHEMA [None]
  - ERYTHEMA OF EYELID [None]
  - GAMMA-GLUTAMYLTRANSFERASE INCREASED [None]
  - LIP EROSION [None]
  - OEDEMA [None]
  - PYREXIA [None]
  - RASH [None]
  - STEVENS-JOHNSON SYNDROME [None]
  - VULVAL DISORDER [None]
